FAERS Safety Report 4963512-8 (Version None)
Quarter: 2006Q1

REPORT INFORMATION
  Report Type: 
  Country: None (occurrence: None)
  Receive Date: 20060329
  Receipt Date: 20060213
  Transmission Date: 20060701
  Serious: Yes (Other)
  Sender: FDA-Public Use
  Company Number: 2005BH000090

PATIENT
  Age: 76 Year
  Sex: Female

DRUGS (1)
  1. POLYGAM S/D [Suspect]
     Indication: UVEITIS
     Dosage: 500 MG/KG; IV
     Route: 042

REACTIONS (5)
  - ARTERIOSCLEROSIS [None]
  - CORONARY ARTERY OCCLUSION [None]
  - EMBOLISM [None]
  - MYOCARDIAL INFARCTION [None]
  - THROMBOPHLEBITIS [None]
